FAERS Safety Report 4773157-0 (Version None)
Quarter: 2005Q3

REPORT INFORMATION
  Report Type: 
  Country: None (occurrence: None)
  Receive Date: 20050919
  Receipt Date: 20050909
  Transmission Date: 20060218
  Serious: Yes (Hospitalization)
  Sender: FDA-Public Use
  Company Number: US-ABBOTT-05P-163-0310618-00

PATIENT
  Sex: Female
  Weight: 59.02 kg

DRUGS (11)
  1. HUMIRA [Suspect]
     Indication: RHEUMATOID ARTHRITIS
     Route: 058
     Dates: start: 20050517, end: 20050601
  2. HUMIRA [Suspect]
     Route: 058
     Dates: start: 20050626
  3. ADVAIR DISKUS 100/50 [Concomitant]
     Indication: ASTHMA
     Route: 055
  4. BUDESONIDE [Concomitant]
     Indication: ASTHMA
     Route: 045
  5. SINGULAIR [Concomitant]
     Indication: ASTHMA
     Route: 048
  6. LEVETIRACETAM [Concomitant]
     Indication: MIGRAINE
     Route: 048
     Dates: start: 20040101
  7. LEVETIRACETAM [Concomitant]
     Indication: CONVULSION
  8. HYDROMORPHONE HYDROCHLORIDE [Concomitant]
     Indication: PAIN
     Dates: start: 20050626
  9. FENTANYL [Concomitant]
     Indication: PAIN
     Dates: start: 20050730
  10. ORTHO EVRA [Concomitant]
     Indication: CONTRACEPTION
     Route: 048
     Dates: start: 20030101
  11. MULTI-VITAMINS [Concomitant]
     Indication: VITAMIN SUPPLEMENTATION
     Route: 048
     Dates: start: 20030101

REACTIONS (7)
  - BRONCHITIS [None]
  - COLITIS ULCERATIVE [None]
  - GASTRIC DISORDER [None]
  - GASTROINTESTINAL DISORDER [None]
  - MIGRAINE [None]
  - VOMITING [None]
  - WEIGHT DECREASED [None]
